FAERS Safety Report 18196504 (Version 1)
Quarter: 2020Q3

REPORT INFORMATION
  Report Type: Spontaneous
  Country: US (occurrence: US)
  Receive Date: 20200825
  Receipt Date: 20200825
  Transmission Date: 20201103
  Serious: Yes (Other)
  Sender: FDA-Public Use
  Company Number: None

PATIENT
  Age: 72 Year
  Sex: Female

DRUGS (14)
  1. LOSARTAN. [Concomitant]
     Active Substance: LOSARTAN
  2. VALACYCLOVIR [Concomitant]
     Active Substance: VALACYCLOVIR HYDROCHLORIDE
  3. LOPERAMIDE [Concomitant]
     Active Substance: LOPERAMIDE
  4. OMEPRAZOLE. [Concomitant]
     Active Substance: OMEPRAZOLE
  5. ATORVASTATIN [Concomitant]
     Active Substance: ATORVASTATIN
  6. LEFLUNOMIDE. [Concomitant]
     Active Substance: LEFLUNOMIDE
  7. LORATADINE. [Concomitant]
     Active Substance: LORATADINE
  8. VITAMIN D3 [Concomitant]
     Active Substance: CHOLECALCIFEROL
  9. PREDNISONE. [Concomitant]
     Active Substance: PREDNISONE
  10. RINVOQ [Suspect]
     Active Substance: UPADACITINIB
     Indication: RHEUMATOID ARTHRITIS
     Route: 048
     Dates: start: 20200710, end: 20200807
  11. LISINOPRIL. [Concomitant]
     Active Substance: LISINOPRIL
  12. TRAMADOL. [Concomitant]
     Active Substance: TRAMADOL
  13. ONDANSETRON [Concomitant]
     Active Substance: ONDANSETRON
  14. ALPRAZOLAM. [Concomitant]
     Active Substance: ALPRAZOLAM

REACTIONS (5)
  - Impaired healing [None]
  - Swelling face [None]
  - Dysphagia [None]
  - Contusion [None]
  - Tongue blistering [None]

NARRATIVE: CASE EVENT DATE: 20200806
